FAERS Safety Report 14677116 (Version 1)
Quarter: 2018Q1

REPORT INFORMATION
  Report Type: Spontaneous
  Country: US (occurrence: US)
  Receive Date: 20180323
  Receipt Date: 20180323
  Transmission Date: 20180509
  Serious: Yes (Hospitalization)
  Sender: FDA-Public Use
  Company Number: None

PATIENT
  Age: 31 Year
  Sex: Male
  Weight: 81.9 kg

DRUGS (4)
  1. CARBOPLATIN. [Suspect]
     Active Substance: CARBOPLATIN
     Dates: end: 20180307
  2. TAXOL [Suspect]
     Active Substance: PACLITAXEL
     Dates: end: 20171222
  3. IFOSFAMIDE. [Suspect]
     Active Substance: IFOSFAMIDE
     Dates: end: 20171224
  4. ETOPOSIDE (VP-16) [Suspect]
     Active Substance: ETOPOSIDE
     Dates: end: 20180307

REACTIONS (7)
  - Anaemia [None]
  - Stem cell transplant [None]
  - Nausea [None]
  - Diarrhoea [None]
  - Febrile neutropenia [None]
  - Abdominal pain [None]
  - Vomiting [None]

NARRATIVE: CASE EVENT DATE: 20180313
